FAERS Safety Report 10945922 (Version 2)
Quarter: 2015Q2

REPORT INFORMATION
  Report Type: Spontaneous
  Country: US (occurrence: US)
  Receive Date: 20150323
  Receipt Date: 20150409
  Transmission Date: 20150821
  Serious: Yes (Other)
  Sender: FDA-Public Use
  Company Number: US-BAYER-2015-045286

PATIENT
  Age: 27 Year
  Sex: Female

DRUGS (1)
  1. MIRENA [Suspect]
     Active Substance: LEVONORGESTREL
     Indication: CONTRACEPTION
     Dosage: 20 MCG/24HR, CONT
     Route: 015
     Dates: start: 20100816, end: 20150312

REACTIONS (5)
  - Complication of device removal [None]
  - Embedded device [None]
  - Device breakage [None]
  - Device difficult to use [None]
  - Device breakage [None]

NARRATIVE: CASE EVENT DATE: 20150312
